FAERS Safety Report 19413890 (Version 1)
Quarter: 2021Q2

REPORT INFORMATION
  Report Type: Spontaneous
  Country: DE (occurrence: DE)
  Receive Date: 20210614
  Receipt Date: 20210614
  Transmission Date: 20210717
  Serious: Yes (Hospitalization)
  Sender: FDA-Public Use
  Company Number: DE-TEVA-2021-DE-1921228

PATIENT
  Age: 88 Year
  Sex: Female

DRUGS (5)
  1. VERAPAMIL 80?1A PHARMA [Suspect]
     Active Substance: VERAPAMIL HYDROCHLORIDE
     Dosage: 1.5 DOSAGE FORMS DAILY; 80 MG, 0.5?0.5?0.5?0
     Route: 048
  2. MARCUMAR [Concomitant]
     Active Substance: PHENPROCOUMON
     Dosage: ACCORDING TO INR
     Route: 048
  3. HYDROCHLOROTHIAZID [Suspect]
     Active Substance: HYDROCHLOROTHIAZIDE
     Dosage: 25 MG, 0.5?0.25?0?0
     Route: 048
  4. FLECAINID?1A PHARMA 100MG [Suspect]
     Active Substance: FLECAINIDE ACETATE
     Dosage: 200 MILLIGRAM DAILY; 1?0?1?0
     Route: 048
  5. RAMIPRIL 5 [Concomitant]
     Active Substance: RAMIPRIL
     Dosage: 10 MILLIGRAM DAILY; 1?0?1?0
     Route: 048

REACTIONS (5)
  - Dyspnoea exertional [Unknown]
  - Electrolyte imbalance [Unknown]
  - Renal impairment [Unknown]
  - Vertigo [Unknown]
  - General physical health deterioration [Unknown]
